FAERS Safety Report 4899366-8 (Version None)
Quarter: 2006Q1

REPORT INFORMATION
  Report Type: 
  Country: None (occurrence: None)
  Receive Date: 20060106
  Receipt Date: 20050826
  Transmission Date: 20060701
  Serious: No
  Sender: FDA-Public Use
  Company Number: 200510953BWH

PATIENT
  Age: 73 Year
  Sex: Male
  Weight: 95.2554 kg

DRUGS (14)
  1. LEVITRA [Suspect]
     Indication: ERECTILE DYSFUNCTION
     Dosage: 30 MG, TOTAL DAILY, ORAL; ORAL
     Route: 048
     Dates: start: 20050511
  2. LEVITRA [Suspect]
     Indication: ERECTILE DYSFUNCTION
     Dosage: 30 MG, TOTAL DAILY, ORAL; ORAL
     Route: 048
     Dates: start: 20050714
  3. PROPYLTHIOURACIL [Concomitant]
  4. VITAMIN E [Concomitant]
  5. GLUCOSAMINE [Concomitant]
  6. POTASSIUM [Concomitant]
  7. TOPROL [Concomitant]
  8. ASPIRIN [Concomitant]
  9. CALCIUM +D [Concomitant]
  10. ULTRACET [Concomitant]
  11. ULTRAM [Concomitant]
  12. MELATONIN [Concomitant]
  13. VIAGRA [Concomitant]
  14. ADALAT [Concomitant]

REACTIONS (1)
  - ERECTILE DYSFUNCTION [None]
